FAERS Safety Report 8524494-5 (Version None)
Quarter: 2012Q3

REPORT INFORMATION
  Report Type: 
  Country: None (occurrence: None)
  Receive Date: 20120720
  Receipt Date: 20120717
  Transmission Date: 20120928
  Serious: Yes (Other)
  Sender: FDA-Public Use
  Company Number: JP-SANOFI-AVENTIS-2012SA047908

PATIENT
  Age: 56 Year
  Sex: Male

DRUGS (2)
  1. DOCETAXEL [Suspect]
     Indication: MALIGNANT PLEURAL EFFUSION
     Route: 065
     Dates: start: 20080101
  2. NEDAPLATIN [Suspect]
     Indication: MALIGNANT PLEURAL EFFUSION
     Route: 065
     Dates: start: 20080101

REACTIONS (4)
  - BLOOD SODIUM DECREASED [None]
  - ALTERED STATE OF CONSCIOUSNESS [None]
  - INAPPROPRIATE ANTIDIURETIC HORMONE SECRETION [None]
  - BLOOD ANTIDIURETIC HORMONE INCREASED [None]
